FAERS Safety Report 4902856-2 (Version None)
Quarter: 2006Q1

REPORT INFORMATION
  Report Type: 
  Country: None (occurrence: None)
  Receive Date: 20060207
  Receipt Date: 20060131
  Transmission Date: 20060701
  Serious: Yes (Hospitalization, Other)
  Sender: FDA-Public Use
  Company Number: GB-BOEHRINGER INGELHEIM PHARMACEUTICALS, INC.-2006-UK-00371UK

PATIENT
  Age: 41 Year
  Sex: Female
  Weight: 101 kg

DRUGS (5)
  1. IPRATROPIUM BROMIDE [Suspect]
     Route: 055
     Dates: start: 20051030, end: 20051031
  2. AMINOPHYLLINE [Suspect]
     Dosage: { 500 MG
     Route: 042
     Dates: start: 20051030, end: 20051030
  3. SALBUTAMOL [Suspect]
     Route: 055
     Dates: start: 20051030, end: 20051031
  4. PIRITON [Concomitant]
     Route: 048
     Dates: start: 20051030, end: 20051030
  5. LORAZEPAM [Concomitant]
     Route: 048
     Dates: start: 20051030, end: 20051031

REACTIONS (2)
  - AMNESIA [None]
  - CONFUSIONAL STATE [None]
